FAERS Safety Report 20103625 (Version 6)
Quarter: 2022Q1

REPORT INFORMATION
  Report Type: Spontaneous
  Country: DE (occurrence: DE)
  Receive Date: 20211123
  Receipt Date: 20220203
  Transmission Date: 20220423
  Serious: Yes (Death, Other)
  Sender: FDA-Public Use
  Company Number: DE-BoehringerIngelheim-2021-BI-139733

PATIENT
  Age: 87 Year
  Sex: Male
  Weight: 79.3 kg

DRUGS (8)
  1. PRADAXA [Suspect]
     Active Substance: DABIGATRAN ETEXILATE MESYLATE
     Indication: Atrial fibrillation
     Dosage: 2 X 2.5 G
     Route: 048
     Dates: start: 201806, end: 20210501
  2. Torem 20 mg [Concomitant]
     Indication: Hypertension
     Route: 048
     Dates: end: 20210508
  3. Torem 20 mg [Concomitant]
     Dosage: FORM OF ADMIN: SOLUTION
     Route: 042
     Dates: start: 20210509, end: 20210509
  4. PANTOPRAZOLE SODIUM [Concomitant]
     Active Substance: PANTOPRAZOLE SODIUM
     Indication: Prophylaxis
     Route: 048
     Dates: end: 20210509
  5. Digitoxin 0.07 mg [Concomitant]
     Indication: Atrial fibrillation
     Route: 048
     Dates: end: 20210509
  6. BISOPROLOL [Concomitant]
     Active Substance: BISOPROLOL
     Indication: Hypertension
     Route: 048
     Dates: end: 20210509
  7. RAMIPRIL [Concomitant]
     Active Substance: RAMIPRIL
     Indication: Hypertension
     Route: 048
     Dates: end: 20210509
  8. SIMVASTATIN [Concomitant]
     Active Substance: SIMVASTATIN
     Indication: Hyperlipidaemia
     Route: 048
     Dates: end: 20210509

REACTIONS (2)
  - Cerebral haemorrhage [Fatal]
  - Cerebral mass effect [Fatal]

NARRATIVE: CASE EVENT DATE: 20210502
